APPROVED DRUG PRODUCT: ALLOPURINOL
Active Ingredient: ALLOPURINOL
Strength: 100MG
Dosage Form/Route: TABLET;ORAL
Application: A018659 | Product #001 | TE Code: AB
Applicant: MYLAN PHARMACEUTICALS INC
Approved: Oct 24, 1986 | RLD: No | RS: No | Type: RX